FAERS Safety Report 9101469 (Version 1)
Quarter: 2013Q1

REPORT INFORMATION
  Report Type: Report from Study
  Country: US (occurrence: US)
  Receive Date: 20130218
  Receipt Date: 20130218
  Transmission Date: 20140127
  Serious: No
  Sender: FDA-Public Use
  Company Number: US-ABBOTT-12P-163-1001835-00

PATIENT
  Age: 57 Year
  Sex: Female
  Weight: 65.83 kg

DRUGS (3)
  1. SIMCOR 500/40 [Suspect]
     Indication: BLOOD CHOLESTEROL ABNORMAL
     Dosage: 500/40 MG 1 AT BEDTIME
     Route: 048
     Dates: start: 20121020
  2. BENICAR [Concomitant]
     Indication: PRODUCT USED FOR UNKNOWN INDICATION
     Route: 048
  3. ADVIL [Concomitant]
     Indication: PRODUCT USED FOR UNKNOWN INDICATION
     Dosage: 30 MIN BEFORE DOSE OF SIMCOR
     Route: 048

REACTIONS (3)
  - Paraesthesia [Recovered/Resolved]
  - Sensory disturbance [Recovered/Resolved]
  - Drug dose omission [Unknown]
